FAERS Safety Report 12756594 (Version 1)
Quarter: 2016Q3

REPORT INFORMATION
  Report Type: Spontaneous
  Country: US (occurrence: US)
  Receive Date: 20160917
  Receipt Date: 20160917
  Transmission Date: 20161109
  Serious: No
  Sender: FDA-Public Use
  Company Number: US-BAXTER-2016BAX046101

PATIENT
  Sex: Male

DRUGS (1)
  1. DOPAMINE HYDROCHLORIDE AND DEXTROSE [Suspect]
     Active Substance: DOPAMINE HYDROCHLORIDE
     Indication: PRODUCT USED FOR UNKNOWN INDICATION
     Route: 042
     Dates: start: 20160815

REACTIONS (3)
  - Device infusion issue [Unknown]
  - Adverse drug reaction [Unknown]
  - Incorrect drug administration rate [Unknown]

NARRATIVE: CASE EVENT DATE: 20160815
